FAERS Safety Report 16196439 (Version 1)
Quarter: 2019Q2

REPORT INFORMATION
  Report Type: Spontaneous
  Country: US (occurrence: US)
  Receive Date: 20190412
  Receipt Date: 20190412
  Transmission Date: 20190711
  Serious: Yes (Hospitalization, Other)
  Sender: FDA-Public Use
  Company Number: None

PATIENT
  Age: 23 Year
  Sex: Female
  Weight: 110.25 kg

DRUGS (1)
  1. TOPAMAX [Suspect]
     Active Substance: TOPIRAMATE
     Indication: MIGRAINE
     Dates: start: 20190211, end: 20190223

REACTIONS (23)
  - Product complaint [None]
  - Oropharyngeal pain [None]
  - Palpitations [None]
  - Facial nerve disorder [None]
  - Visual snow syndrome [None]
  - Visual acuity reduced [None]
  - Hypoaesthesia oral [None]
  - Pyrexia [None]
  - Neuropathy peripheral [None]
  - Ageusia [None]
  - Diplopia [None]
  - Vision blurred [None]
  - Anxiety [None]
  - Hypertension [None]
  - Therapy cessation [None]
  - Visual perseveration [None]
  - Diarrhoea [None]
  - Dry eye [None]
  - Dry mouth [None]
  - Ear pain [None]
  - Paraesthesia [None]
  - Suicidal ideation [None]
  - Panic attack [None]

NARRATIVE: CASE EVENT DATE: 20190224
